FAERS Safety Report 23731309 (Version 1)
Quarter: 2024Q2

REPORT INFORMATION
  Report Type: Report from Study
  Country: US (occurrence: US)
  Receive Date: 20240411
  Receipt Date: 20240411
  Transmission Date: 20240716
  Serious: Yes (Other)
  Sender: FDA-Public Use
  Company Number: US-HORIZON THERAPEUTICS-HZN-2023-005481

PATIENT

DRUGS (3)
  1. TEPEZZA [Suspect]
     Active Substance: TEPROTUMUMAB-TRBW
     Indication: Endocrine ophthalmopathy
     Dosage: FIRST INFUSION
     Route: 042
     Dates: start: 20230515
  2. TEPEZZA [Suspect]
     Active Substance: TEPROTUMUMAB-TRBW
     Dosage: FOURTH INFUSION
     Route: 042
     Dates: start: 2023
  3. TEPEZZA [Suspect]
     Active Substance: TEPROTUMUMAB-TRBW
     Dosage: FIFTH INFUSION
     Route: 042
     Dates: start: 2023

REACTIONS (17)
  - Coeliac disease [Unknown]
  - Feeling cold [Not Recovered/Not Resolved]
  - Infrequent bowel movements [Unknown]
  - Ear discomfort [Unknown]
  - Glycosylated haemoglobin increased [Unknown]
  - Weight decreased [Recovering/Resolving]
  - Excessive cerumen production [Unknown]
  - Increased need for sleep [Unknown]
  - Dry mouth [Recovering/Resolving]
  - Nail disorder [Recovering/Resolving]
  - Fatigue [Not Recovered/Not Resolved]
  - Diarrhoea [Unknown]
  - Muscle spasms [Recovered/Resolved]
  - Blood glucose increased [Unknown]
  - Dysgeusia [Recovering/Resolving]
  - Hypoacusis [Not Recovered/Not Resolved]
  - COVID-19 [Unknown]

NARRATIVE: CASE EVENT DATE: 20230101
